FAERS Safety Report 6266824-3 (Version None)
Quarter: 2009Q3

REPORT INFORMATION
  Report Type: 
  Country: None (occurrence: None)
  Receive Date: 20090714
  Receipt Date: 20090701
  Transmission Date: 20100115
  Serious: Yes (Death)
  Sender: FDA-Public Use
  Company Number: TR-SOLVAY-00209003613

PATIENT
  Age: 67 Year
  Sex: Male

DRUGS (5)
  1. CARDARONE [Concomitant]
     Indication: DRUG USE FOR UNKNOWN INDICATION
     Dosage: DAILY DOSE: 200 MILLIGRAM(S)
     Route: 065
  2. COVERSYL [Suspect]
     Indication: DRUG USE FOR UNKNOWN INDICATION
     Dosage: DAILY DOSE: 1.25 MILLIGRAM(S)
     Route: 065
  3. LASIX [Concomitant]
     Indication: DRUG USE FOR UNKNOWN INDICATION
     Dosage: DAILY DOSE: 40 MILLIGRAM(S)
     Route: 065
  4. ECOPRIN [Suspect]
     Indication: DRUG USE FOR UNKNOWN INDICATION
     Dosage: DAILY DOSE: 150 MILLIGRAM(S)
     Route: 065
  5. ENDOL [Suspect]
     Indication: DRUG USE FOR UNKNOWN INDICATION
     Dosage: DAILY DOSE: 25 MILLIGRAM(S)
     Route: 065

REACTIONS (2)
  - ACINETOBACTER INFECTION [None]
  - TOXIC EPIDERMAL NECROLYSIS [None]
